FAERS Safety Report 8983398 (Version 2)
Quarter: 2014Q4

REPORT INFORMATION
  Report Type: Spontaneous
  Country: FR (occurrence: FR)
  Receive Date: 20121224
  Receipt Date: 20141209
  Transmission Date: 20150529
  Serious: Yes (Hospitalization, Other)
  Sender: FDA-Public Use
  Company Number: FR-RANBAXY-2012R1-63569

PATIENT
  Age: 26 Year
  Sex: Female

DRUGS (1)
  1. CODEINE [Suspect]
     Active Substance: CODEINE
     Indication: UPPER RESPIRATORY TRACT INFECTION
     Dosage: UNK
     Route: 048

REACTIONS (1)
  - Pancreatitis acute [Recovered/Resolved]
